FAERS Safety Report 20860102 (Version 2)
Quarter: 2022Q3

REPORT INFORMATION
  Report Type: Report from Study
  Country: US (occurrence: None)
  Receive Date: 20220523
  Receipt Date: 20220814
  Transmission Date: 20221027
  Serious: Yes (Hospitalization)
  Sender: FDA-Public Use
  Company Number: US-ROCHE-3098753

PATIENT
  Age: 84 Year
  Sex: Female
  Weight: 68 kg

DRUGS (18)
  1. EBI-031 [Suspect]
     Active Substance: EBI-031
     Indication: Diabetic retinal oedema
     Dosage: ON 14/APR/2022 8:13 AM, START DATE AND END DATE OF MOST RECENT DOSE OF STUDY DRUG PRIOR TO AE
     Route: 050
     Dates: start: 20220414
  2. RANIBIZUMAB [Suspect]
     Active Substance: RANIBIZUMAB
     Indication: Diabetic retinal oedema
     Dosage: MOST RECENT DOSE OF FIRST AND LAST STUDY DRUG ADMIN PRIOR  TO AE IS 0.5 MG?ON 14/APR/2022 8:13 AM, S
     Route: 050
     Dates: start: 20220414
  3. BRILINTA [Concomitant]
     Active Substance: TICAGRELOR
     Route: 048
     Dates: start: 20220513, end: 20220802
  4. HEPARIN [Concomitant]
     Active Substance: HEPARIN SODIUM
     Dosage: DRUG DOSE FIRST ADMINISTERED IS 60 IU/ML ;ONGOING: NO
     Route: 041
     Dates: start: 20220512, end: 20220512
  5. LISINOPRIL [Concomitant]
     Active Substance: LISINOPRIL
     Indication: Hypertension
     Dates: start: 2015, end: 20220802
  6. LISINOPRIL [Concomitant]
     Active Substance: LISINOPRIL
     Dates: start: 2015, end: 20220802
  7. METFORMIN [Concomitant]
     Active Substance: METFORMIN HYDROCHLORIDE
     Indication: Type 2 diabetes mellitus
     Route: 065
     Dates: start: 2015, end: 20220512
  8. METOPROLOL [Concomitant]
     Active Substance: METOPROLOL
     Indication: Hypertension
     Dates: start: 2013
  9. OMEPRAZOLE [Concomitant]
     Active Substance: OMEPRAZOLE
     Indication: Gastrooesophageal reflux disease
     Dates: start: 2016
  10. SYNTHROID [Concomitant]
     Active Substance: LEVOTHYROXINE SODIUM
     Indication: Hypothyroidism
     Dosage: 75 UG
     Dates: start: 2015
  11. DOCUSATE SODIUM [Concomitant]
     Active Substance: DOCUSATE SODIUM
     Indication: Constipation
     Dates: start: 20220327
  12. NITROGLYCERIN [Concomitant]
     Active Substance: NITROGLYCERIN
     Indication: Prophylaxis
     Dates: start: 20220327
  13. MIRALAX [Concomitant]
     Active Substance: POLYETHYLENE GLYCOL 3350
     Indication: Constipation
     Dates: start: 20220327
  14. AMLODIPINE [Concomitant]
     Active Substance: AMLODIPINE BESYLATE
     Indication: Hypertension
     Dates: start: 2012
  15. CORTISPORIN DROPS [Concomitant]
     Indication: Ear pruritus
     Dosage: AS REQUIRED
     Dates: start: 20220119
  16. VITAMIN B12 [Concomitant]
     Active Substance: CYANOCOBALAMIN
     Indication: Prophylaxis
     Dosage: 100 UG, AS REQUIRED
  17. VITAMIN D2 [Concomitant]
     Active Substance: ERGOCALCIFEROL
     Indication: Prophylaxis
     Dosage: AS REQUIRED
  18. TRESIBA [Concomitant]
     Active Substance: INSULIN DEGLUDEC
     Indication: Type 2 diabetes mellitus
     Dates: start: 20220119, end: 20220802

REACTIONS (1)
  - Myocardial infarction [Recovered/Resolved]

NARRATIVE: CASE EVENT DATE: 20220511
